FAERS Safety Report 8600961-0 (Version None)
Quarter: 2012Q3

REPORT INFORMATION
  Report Type: 
  Country: None (occurrence: None)
  Receive Date: 20120817
  Receipt Date: 20120807
  Transmission Date: 20120928
  Serious: Yes (Hospitalization)
  Sender: FDA-Public Use
  Company Number: FR-CELGENEUS-056-50794-12073010

PATIENT
  Sex: Male
  Weight: 73 kg

DRUGS (4)
  1. REVLIMID [Suspect]
     Route: 048
     Dates: end: 20120502
  2. VIDAZA [Suspect]
     Route: 058
     Dates: start: 20120403
  3. VIDAZA [Suspect]
     Route: 058
     Dates: start: 20120627, end: 20120705
  4. REVLIMID [Suspect]
     Route: 048
     Dates: start: 20120403, end: 20120412

REACTIONS (1)
  - CYTOLYTIC HEPATITIS [None]
